FAERS Safety Report 7990008-1 (Version None)
Quarter: 2011Q4

REPORT INFORMATION
  Report Type: 
  Country: None (occurrence: None)
  Receive Date: 20111219
  Receipt Date: 20101027
  Transmission Date: 20120403
  Serious: No
  Sender: FDA-Public Use
  Company Number: US-ASTRAZENECA-2009UW00982

PATIENT
  Age: 68 Year
  Sex: Female
  Weight: 71.7 kg

DRUGS (8)
  1. CRESTOR [Suspect]
     Route: 048
     Dates: start: 20100601
  2. JANUMET [Concomitant]
  3. CRESTOR [Suspect]
     Indication: BLOOD CHOLESTEROL INCREASED
     Route: 048
     Dates: start: 20081215
  4. CRESTOR [Suspect]
     Route: 048
     Dates: end: 20101025
  5. ASPIRIN [Concomitant]
  6. MULTI-VITAMIN [Concomitant]
  7. PEPCID [Concomitant]
  8. GLYBURIDE WITH METFORMIN [Concomitant]

REACTIONS (5)
  - GAIT DISTURBANCE [None]
  - MYALGIA [None]
  - FLATULENCE [None]
  - HEADACHE [None]
  - ABDOMINAL PAIN [None]
